FAERS Safety Report 18461893 (Version 1)
Quarter: 2020Q4

REPORT INFORMATION
  Report Type: Spontaneous
  Country: JP (occurrence: JP)
  Receive Date: 20201104
  Receipt Date: 20201104
  Transmission Date: 20210114
  Serious: Yes (Hospitalization)
  Sender: FDA-Public Use
  Company Number: NVSJ2020JP011135

PATIENT
  Age: 81 Year
  Sex: Female

DRUGS (5)
  1. ENERZAIR (MOMETASONE FUROATE\INDACATEROL ACETATE\GLYCOPYRRONIUM BROMIDE) [Suspect]
     Active Substance: GLYCOPYRROLATE\INDACATEROL\MOMETASONE FUROATE
     Dosage: MOMETASONE FUROATE160UG,GLYCOPYRRONIUM50UG,INDACATEROL150UG, UNK
     Route: 055
     Dates: start: 20200925, end: 20201006
  2. PREDONINE [Concomitant]
     Active Substance: PREDNISOLONE
     Indication: RESPIRATORY TRACT INFLAMMATION
     Dosage: 40 MG
     Route: 048
     Dates: start: 20200925, end: 20200928
  3. GENINAX [Concomitant]
     Active Substance: GARENOXACIN MESYLATE
     Indication: RESPIRATORY TRACT INFLAMMATION
     Dosage: 400 MG
     Route: 048
     Dates: start: 20200929, end: 20201006
  4. PREDONINE [Concomitant]
     Active Substance: PREDNISOLONE
     Dosage: 20 MG
     Route: 048
     Dates: start: 20200929, end: 20201006
  5. ENERZAIR (MOMETASONE FUROATE\INDACATEROL ACETATE\GLYCOPYRRONIUM BROMIDE) [Suspect]
     Active Substance: GLYCOPYRROLATE\INDACATEROL\MOMETASONE FUROATE
     Indication: ASTHMA
     Dosage: MOMETASONE FUROATE80UG,GLYCOPYRRONIUM50UG,INDACATEROL150UG, UNK
     Route: 055
     Dates: start: 20200908, end: 20200924

REACTIONS (3)
  - Tuberculosis [Unknown]
  - Respiratory tract inflammation [Unknown]
  - Dyspnoea [Unknown]

NARRATIVE: CASE EVENT DATE: 20201012
